FAERS Safety Report 5316596-1 (Version None)
Quarter: 2007Q2

REPORT INFORMATION
  Report Type: 
  Country: None (occurrence: None)
  Receive Date: 20070504
  Receipt Date: 20070424
  Transmission Date: 20071010
  Serious: Yes (Hospitalization)
  Sender: FDA-Public Use
  Company Number: US-AMGEN-US221561

PATIENT
  Sex: Female

DRUGS (1)
  1. ENBREL [Suspect]
     Indication: RHEUMATOID ARTHRITIS
     Route: 065
     Dates: start: 20030101

REACTIONS (6)
  - CORONARY ARTERIAL STENT INSERTION [None]
  - FOOT FRACTURE [None]
  - GALLBLADDER OPERATION [None]
  - HAND FRACTURE [None]
  - MYOCARDIAL INFARCTION [None]
  - PRURITUS [None]
